FAERS Safety Report 9411910 (Version 2)
Quarter: 2013Q2

REPORT INFORMATION
  Report Type: Spontaneous
  Country: DE (occurrence: None)
  Receive Date: 20130430
  Receipt Date: 20130510
  Transmission Date: 20140414
  Serious: Yes (Other)
  Sender: FDA-Public Use
  Company Number: 1302-185

PATIENT
  Age: 82 Year
  Sex: Female
  Weight: 52 kg

DRUGS (6)
  1. EYLEA [Suspect]
     Dates: start: 20121211, end: 20121211
  2. SELIPRAN (PRAVASTATIN SODIUM) [Concomitant]
  3. DIOVAN (VALSARTAN) [Concomitant]
  4. ELTROXIN (LEVOTHYROXINE SODIUM) (LEVOTHYROXINE SODIUM) [Concomitant]
  5. POVIDINE (POVIDINE) [Concomitant]
  6. TOBREX (TOBRAMYCIN) (EYE DROPS) [Concomitant]

REACTIONS (2)
  - Photosensitivity reaction [None]
  - Pseudoendophthalmitis [None]
